FAERS Safety Report 7630236-8 (Version None)
Quarter: 2011Q3

REPORT INFORMATION
  Report Type: 
  Country: None (occurrence: None)
  Receive Date: 20110722
  Receipt Date: 20110713
  Transmission Date: 20111222
  Serious: Yes (Hospitalization, Congenital Anomaly, Other)
  Sender: FDA-Public Use
  Company Number: US-PFIZER INC-2011159814

PATIENT
  Sex: Male
  Weight: 2.6 kg

DRUGS (1)
  1. ZOLOFT [Suspect]
     Dosage: 50 MG, UNK
     Route: 064

REACTIONS (9)
  - ATRIAL SEPTAL DEFECT [None]
  - HEPATOMEGALY [None]
  - COR TRIATRIATUM [None]
  - PULMONARY HYPERTENSION [None]
  - RESPIRATORY DISTRESS [None]
  - VENTRICULAR HYPERTROPHY [None]
  - PULMONARY CONGESTION [None]
  - MATERNAL EXPOSURE DURING PREGNANCY [None]
  - TACHYPNOEA [None]
